FAERS Safety Report 6490067-1 (Version None)
Quarter: 2009Q4

REPORT INFORMATION
  Report Type: 
  Country: None (occurrence: None)
  Receive Date: 20091211
  Receipt Date: 20081118
  Transmission Date: 20100525
  Serious: No
  Sender: FDA-Public Use
  Company Number: A0757996A

PATIENT
  Age: 64 Year
  Sex: Female

DRUGS (1)
  1. FLUTICASONE [Suspect]
     Indication: DRUG USE FOR UNKNOWN INDICATION
     Route: 045

REACTIONS (1)
  - DRUG INEFFECTIVE [None]
